FAERS Safety Report 5244835-4 (Version None)
Quarter: 2007Q1

REPORT INFORMATION
  Report Type: 
  Country: None (occurrence: None)
  Receive Date: 20070216
  Receipt Date: 20070115
  Transmission Date: 20070707
  Serious: Yes (Hospitalization)
  Sender: FDA-Public Use
  Company Number: FRPFM-E-20070002

PATIENT
  Age: 60 Year
  Sex: Male

DRUGS (9)
  1. NAVELBINE [Suspect]
     Indication: LUNG NEOPLASM MALIGNANT
     Dates: start: 20061125, end: 20061125
  2. ALIMTA [Suspect]
     Indication: LUNG NEOPLASM MALIGNANT
     Dates: start: 20051129, end: 20061129
  3. CARBOPLATIN [Suspect]
     Indication: LUNG NEOPLASM MALIGNANT
     Dates: start: 20061125, end: 20061125
  4. LYRICA [Concomitant]
  5. INIPOMP [Concomitant]
  6. CRESTOR [Concomitant]
  7. SEROPLEX [Concomitant]
  8. ZOLPIDEM TARTRATE [Concomitant]
  9. SPECIAFOLDINE [Concomitant]

REACTIONS (6)
  - APLASIA [None]
  - PLATELET COUNT DECREASED [None]
  - PURPURA [None]
  - RED BLOOD CELL COUNT DECREASED [None]
  - TOXIC SKIN ERUPTION [None]
  - WHITE BLOOD CELL COUNT DECREASED [None]
